FAERS Safety Report 15543106 (Version 1)
Quarter: 2018Q4

REPORT INFORMATION
  Report Type: Spontaneous
  Country: US (occurrence: US)
  Receive Date: 20181023
  Receipt Date: 20181023
  Transmission Date: 20190205
  Serious: Yes (Other)
  Sender: FDA-Public Use
  Company Number: US-ASTRAZENECA-2018SF36151

PATIENT
  Age: 21361 Day
  Sex: Female

DRUGS (4)
  1. OMALIZUMAB. [Concomitant]
     Active Substance: OMALIZUMAB
  2. OSIMERTINIB. [Suspect]
     Active Substance: OSIMERTINIB
     Indication: LUNG CANCER METASTATIC
     Route: 048
     Dates: start: 20171004
  3. PREDNISONE. [Concomitant]
     Active Substance: PREDNISONE
  4. ERLOTINIB [Concomitant]
     Active Substance: ERLOTINIB

REACTIONS (12)
  - Anaphylactic reaction [Recovered/Resolved]
  - Chest discomfort [Recovered/Resolved]
  - Hyperhidrosis [Recovered/Resolved]
  - Diarrhoea [Recovered/Resolved]
  - Pyrexia [Recovered/Resolved]
  - Dyspnoea [Recovered/Resolved]
  - Flushing [Recovered/Resolved]
  - Dizziness [Recovered/Resolved]
  - Presyncope [Recovered/Resolved]
  - Vomiting [Recovered/Resolved]
  - Nausea [Recovered/Resolved]
  - Nasal congestion [Recovered/Resolved]

NARRATIVE: CASE EVENT DATE: 20171005
